FAERS Safety Report 9805244 (Version 1)
Quarter: 2014Q1

REPORT INFORMATION
  Report Type: Spontaneous
  Country: JP (occurrence: None)
  Receive Date: 20140106
  Receipt Date: 20140106
  Transmission Date: 20141002
  Serious: Yes (Hospitalization)
  Sender: FDA-Public Use
  Company Number: 2013P1022284

PATIENT
  Age: 21 Year
  Sex: Female

DRUGS (1)
  1. METHIMAZOLE [Suspect]
     Indication: HYPERTHYROIDISM

REACTIONS (5)
  - Nephrotic syndrome [None]
  - Glomerulonephritis [None]
  - Glomerulonephritis membranous [None]
  - Insomnia [None]
  - Decreased appetite [None]
